FAERS Safety Report 12273064 (Version 1)
Quarter: 2016Q2

REPORT INFORMATION
  Report Type: Report from Study
  Country: US (occurrence: US)
  Receive Date: 20160415
  Receipt Date: 20160415
  Transmission Date: 20160815
  Serious: Yes (Other)
  Sender: FDA-Public Use
  Company Number: US-TEVA-651547USA

PATIENT
  Age: 34 Year
  Sex: Female

DRUGS (1)
  1. ZECUITY [Suspect]
     Active Substance: SUMATRIPTAN SUCCINATE
     Indication: MIGRAINE
     Dosage: 6.5 MG OVER 4 HOURS
     Route: 062

REACTIONS (6)
  - Device battery issue [Unknown]
  - Application site irritation [Recovered/Resolved]
  - Chemical burn of skin [Recovered/Resolved]
  - Application site burn [Recovered/Resolved]
  - Application site discomfort [Recovered/Resolved]
  - Application site discolouration [Not Recovered/Not Resolved]
